FAERS Safety Report 6104911-0 (Version None)
Quarter: 2009Q1

REPORT INFORMATION
  Report Type: 
  Country: None (occurrence: None)
  Receive Date: 20090304
  Receipt Date: 20090304
  Transmission Date: 20090719
  Serious: Yes (Life-Threatening)
  Sender: FDA-Public Use
  Company Number: None

PATIENT
  Sex: Female
  Weight: 79.1073 kg

DRUGS (11)
  1. CHANTIX [Suspect]
     Indication: TOBACCO ABUSE
     Dosage: SEE BELOW PO 2/26 - 2/13 (START 0.5MG QD X3D THEN 0.5 MG BID THEN 1 MG BID
     Route: 048
     Dates: start: 20090226
  2. COUMADIN [Concomitant]
  3. ZOLOFT [Concomitant]
  4. CRESTOR [Concomitant]
  5. FLONASE [Concomitant]
  6. TOPROL-XL [Concomitant]
  7. ASPIRIN [Concomitant]
  8. REQUIP [Concomitant]
  9. ZITHROMAX [Concomitant]
  10. ALLEGRA [Concomitant]
  11. SPIRIVA [Concomitant]

REACTIONS (7)
  - ABNORMAL BEHAVIOUR [None]
  - INTENTIONAL OVERDOSE [None]
  - INTENTIONAL SELF-INJURY [None]
  - IRRITABILITY [None]
  - LACERATION [None]
  - SUICIDE ATTEMPT [None]
  - VOMITING [None]
